FAERS Safety Report 4544293-9 (Version None)
Quarter: 2004Q4

REPORT INFORMATION
  Report Type: 
  Country: None (occurrence: None)
  Receive Date: 20041230
  Receipt Date: 20041217
  Transmission Date: 20050328
  Serious: Yes (Hospitalization)
  Sender: FDA-Public Use
  Company Number: ACO_0035_2004

PATIENT
  Age: 70 Year
  Sex: Female
  Weight: 54.7 kg

DRUGS (10)
  1. TIZANIDINE [Suspect]
     Indication: PAIN IN EXTREMITY
     Dosage: 3 MG QDAY PO
     Route: 048
  2. FLUVOXAMINE MALEATE [Suspect]
     Indication: DEPRESSION
     Dosage: 150 MG QDAY
  3. ZOPICLONE [Concomitant]
  4. FLUNITRAZEPAM [Concomitant]
  5. BENIDIPINE [Concomitant]
  6. CANDESARTAN [Concomitant]
  7. TICLOPIDINE HCL [Concomitant]
  8. FAMOTIDINE [Concomitant]
  9. BEZAFIBRATE [Concomitant]
  10. CARBAMAZEPINE [Concomitant]

REACTIONS (4)
  - BODY TEMPERATURE DECREASED [None]
  - DRY MOUTH [None]
  - ENURESIS [None]
  - HEART RATE DECREASED [None]
